FAERS Safety Report 5799142-8 (Version None)
Quarter: 2008Q3

REPORT INFORMATION
  Report Type: 
  Country: None (occurrence: None)
  Receive Date: 20080702
  Receipt Date: 20080626
  Transmission Date: 20090109
  Serious: Yes (Hospitalization)
  Sender: FDA-Public Use
  Company Number: US-BOEHRINGER INGELHEIM GMBH, GERMANY-2008-DE-03717GD

PATIENT
  Age: 49 Year
  Sex: Female

DRUGS (13)
  1. IPRATROPIUM BROMIDE [Suspect]
     Indication: ASTHMA
     Route: 055
  2. PREDNISONE 50MG TAB [Suspect]
     Indication: ASTHMA
  3. ALBUTEROL [Suspect]
     Indication: ASTHMA
     Dosage: 5 MG/H
     Route: 055
  4. MAGNESIUM SULFATE [Suspect]
     Indication: ASTHMA
     Route: 042
  5. FLUTICASONE/SALMETEROL [Concomitant]
  6. MONTELUKAST SODIUM [Concomitant]
  7. LEVALBUTEROL HCL [Concomitant]
  8. FEXOFENADINE [Concomitant]
  9. FLUTICASONE PROPIONATE [Concomitant]
     Route: 045
  10. AZELASTINE HCL [Concomitant]
  11. PANTOPRAZOLE SODIUM [Concomitant]
  12. HYDROCHLOROTHIAZIDE [Concomitant]
  13. WARFARIN SODIUM [Concomitant]
     Indication: ANTICOAGULANT THERAPY

REACTIONS (1)
  - DRUG INEFFECTIVE [None]
